FAERS Safety Report 21052853 (Version 1)
Quarter: 2022Q3

REPORT INFORMATION
  Report Type: Spontaneous
  Country: US (occurrence: US)
  Receive Date: 20220707
  Receipt Date: 20220707
  Transmission Date: 20221027
  Serious: Yes (Hospitalization, Other)
  Sender: FDA-Public Use
  Company Number: US-PFIZER INC-202200909146

PATIENT
  Age: 84 Year
  Sex: Male
  Weight: 58.8 kg

DRUGS (3)
  1. AMLODIPINE BESYLATE [Suspect]
     Active Substance: AMLODIPINE BESYLATE
     Dosage: UNK
  2. HALOPERIDOL [Concomitant]
     Active Substance: HALOPERIDOL
     Dosage: USUAL DOSES
  3. QUETIAPINE [Concomitant]
     Active Substance: QUETIAPINE
     Dosage: USUAL DOSES

REACTIONS (3)
  - Accidental overdose [Unknown]
  - Seizure [Recovered/Resolved]
  - Hypotension [Recovered/Resolved]
